FAERS Safety Report 9270600 (Version 1)
Quarter: 2013Q2

REPORT INFORMATION
  Report Type: Spontaneous
  Country: US (occurrence: US)
  Receive Date: 20130503
  Receipt Date: 20130503
  Transmission Date: 20140414
  Serious: No
  Sender: FDA-Public Use
  Company Number: US-ASTRAZENECA-2013SE26967

PATIENT
  Sex: Female
  Weight: 65.8 kg

DRUGS (3)
  1. NEXIUM [Suspect]
     Indication: DYSPEPSIA
     Route: 048
     Dates: start: 1993
  2. PRILOSEC OTC [Suspect]
     Route: 048
     Dates: start: 201204
  3. CELEBREX [Concomitant]
     Indication: ARTHRITIS

REACTIONS (8)
  - Chest pain [Not Recovered/Not Resolved]
  - Osteoporosis [Not Recovered/Not Resolved]
  - Arthritis [Not Recovered/Not Resolved]
  - Poor quality sleep [Not Recovered/Not Resolved]
  - Weight increased [Not Recovered/Not Resolved]
  - Regurgitation [Recovering/Resolving]
  - Intentional drug misuse [Unknown]
  - Drug dose omission [Unknown]
